FAERS Safety Report 24173308 (Version 1)
Quarter: 2024Q3

REPORT INFORMATION
  Report Type: Spontaneous
  Country: DE (occurrence: DE)
  Receive Date: 20240805
  Receipt Date: 20240805
  Transmission Date: 20241017
  Serious: Yes (Disabling, Other)
  Sender: NOVO NORDISK
  Company Number: None

PATIENT
  Age: 63 Year
  Sex: Female

DRUGS (2)
  1. OZEMPIC [Suspect]
     Active Substance: SEMAGLUTIDE
     Indication: Diabetes mellitus
     Dosage: UNK
     Route: 058
     Dates: start: 2022
  2. MARCUMAR [Suspect]
     Active Substance: PHENPROCOUMON
     Indication: Anticoagulant therapy
     Dosage: UNK
     Route: 048

REACTIONS (2)
  - Eye infarction [Recovered/Resolved with Sequelae]
  - Visual impairment [Recovered/Resolved with Sequelae]

NARRATIVE: CASE EVENT DATE: 20240705
